FAERS Safety Report 8356559-5 (Version None)
Quarter: 2012Q2

REPORT INFORMATION
  Report Type: 
  Country: None (occurrence: None)
  Receive Date: 20120514
  Receipt Date: 20120507
  Transmission Date: 20120825
  Serious: Yes (Hospitalization, Other)
  Sender: FDA-Public Use
  Company Number: PHHO2010DE08639

PATIENT
  Sex: Male
  Weight: 82 kg

DRUGS (13)
  1. TACROLIMUS [Suspect]
     Dosage: UNK
     Route: 048
     Dates: start: 20100924
  2. TORSEMIDE [Concomitant]
     Indication: PROPHYLAXIS
     Dosage: UNK
  3. METHYLPREDNISOLONE [Concomitant]
  4. ENOXAPARIN SODIUM [Concomitant]
     Indication: THROMBOSIS PROPHYLAXIS
  5. TAZOBACTAM [Concomitant]
  6. METOPROLOL SUCCINATE [Concomitant]
     Indication: HYPERTENSION
     Dosage: UNK
  7. INSULIN [Concomitant]
  8. PANTOPRAZOLE [Concomitant]
     Indication: PROPHYLAXIS AGAINST GASTROINTESTINAL ULCER
     Dosage: UNK
  9. HEPARIN [Concomitant]
  10. EVEROLIMUS [Suspect]
     Indication: LIVER TRANSPLANT
     Dosage: UNK
     Route: 048
     Dates: start: 20091230
  11. TACROLIMUS [Suspect]
     Indication: LIVER TRANSPLANT
     Dosage: UNK
     Route: 048
     Dates: start: 20091201
  12. LYRICA [Concomitant]
  13. TACROLIMUS [Suspect]
     Dosage: 3 MG, BID
     Route: 048
     Dates: start: 20100502, end: 20100923

REACTIONS (3)
  - ANASTOMOTIC STENOSIS [None]
  - CHOLANGITIS [None]
  - HEPATIC ARTERY STENOSIS [None]
